FAERS Safety Report 11144151 (Version 1)
Quarter: 2015Q2

REPORT INFORMATION
  Report Type: Spontaneous
  Country: US (occurrence: US)
  Receive Date: 20150526
  Receipt Date: 20150526
  Transmission Date: 20150821
  Serious: No
  Sender: FDA-Public Use
  Company Number: US-MYLANLABS-2015M1005003

PATIENT
  Age: 25 Year
  Sex: Female

DRUGS (1)
  1. NORETHINDRONE ACETATE/ ETHINYL ESTRADIOL TABLETS USP/ FERROUS FUMARATE [Suspect]
     Active Substance: ETHINYL ESTRADIOL\FERROUS FUMARATE\NORETHINDRONE ACETATE
     Indication: CONTRACEPTION
     Dosage: 1 MG/0.02MG/75MG, QD
     Route: 048
     Dates: start: 20150111

REACTIONS (1)
  - Menstruation irregular [Not Recovered/Not Resolved]

NARRATIVE: CASE EVENT DATE: 20150204
